FAERS Safety Report 23924457 (Version 1)
Quarter: 2024Q2

REPORT INFORMATION
  Report Type: Spontaneous
  Country: US (occurrence: US)
  Receive Date: 20240531
  Receipt Date: 20240531
  Transmission Date: 20240716
  Serious: No
  Sender: FDA-Public Use
  Company Number: US-STRIDES ARCOLAB LIMITED-2024SP000776

PATIENT
  Age: 50 Year
  Sex: Male

DRUGS (15)
  1. VANCOMYCIN [Suspect]
     Active Substance: VANCOMYCIN
     Indication: Pulmonary cavitation
     Dosage: UNK
     Route: 065
  2. VANCOMYCIN [Suspect]
     Active Substance: VANCOMYCIN
     Indication: Pneumonia pseudomonal
  3. MEROPENEM [Suspect]
     Active Substance: MEROPENEM
     Indication: Pulmonary cavitation
     Dosage: UNK
     Route: 065
  4. MEROPENEM [Suspect]
     Active Substance: MEROPENEM
     Indication: Pneumonia pseudomonal
  5. REGORAFENIB [Concomitant]
     Active Substance: REGORAFENIB
     Indication: Leiomyosarcoma metastatic
     Dosage: UNK
     Route: 065
  6. REGORAFENIB [Concomitant]
     Active Substance: REGORAFENIB
     Indication: Skull base tumour
  7. REGORAFENIB [Concomitant]
     Active Substance: REGORAFENIB
     Indication: Osteosarcoma
  8. PREDNISONE [Concomitant]
     Active Substance: PREDNISONE
     Indication: Product used for unknown indication
     Dosage: UNK
     Route: 065
  9. TEMOZOLOMIDE [Concomitant]
     Active Substance: TEMOZOLOMIDE
     Indication: Leiomyosarcoma metastatic
     Dosage: UNK
     Route: 065
  10. TEMOZOLOMIDE [Concomitant]
     Active Substance: TEMOZOLOMIDE
     Indication: Skull base tumour
  11. TEMOZOLOMIDE [Concomitant]
     Active Substance: TEMOZOLOMIDE
     Indication: Osteosarcoma
  12. AMOXICILLIN SODIUM;SULBACTAM SODIUM [Concomitant]
     Indication: Pulmonary cavitation
     Dosage: UNK
     Route: 065
  13. AMOXICILLIN SODIUM;SULBACTAM SODIUM [Concomitant]
     Indication: Pneumonia pseudomonal
  14. CEFEPIME [Concomitant]
     Active Substance: CEFEPIME HYDROCHLORIDE
     Indication: Pulmonary cavitation
     Dosage: UNK
     Route: 065
  15. CEFEPIME [Concomitant]
     Active Substance: CEFEPIME HYDROCHLORIDE
     Indication: Pneumonia pseudomonal

REACTIONS (1)
  - Off label use [Unknown]
